FAERS Safety Report 23338550 (Version 1)
Quarter: 2023Q4

REPORT INFORMATION
  Report Type: Report from Study
  Country: US (occurrence: US)
  Receive Date: 20231226
  Receipt Date: 20231226
  Transmission Date: 20240109
  Serious: Yes (Hospitalization, Other)
  Sender: FDA-Public Use
  Company Number: US-TEVA-VS-3137590

PATIENT

DRUGS (5)
  1. TRETINOIN [Suspect]
     Active Substance: TRETINOIN
     Indication: Acute promyelocytic leukaemia
     Dosage: PETHEMA LPA99 PROTOCOL: INITIALLY ADMINISTERED AS INDUCTION THERAPY, FOLLOWED BY CONSOLIDATION TH...
     Route: 065
  2. MITOXANTRONE [Suspect]
     Active Substance: MITOXANTRONE HYDROCHLORIDE
     Indication: Acute promyelocytic leukaemia
     Dosage: PETHEMA LPA99 PROTOCOL: CONSOLIDATION THERAPY
     Route: 065
  3. IDARUBICIN [Suspect]
     Active Substance: IDARUBICIN
     Indication: Acute promyelocytic leukaemia
     Dosage: PETHEMA LPA99 PROTOCOL: INITIALLY ADMINISTERED AS INDUCTION THERAPY, FOLLOWED BY CONSOLIDATION TH...
     Route: 065
  4. METHOTREXATE [Suspect]
     Active Substance: METHOTREXATE
     Indication: Acute promyelocytic leukaemia
     Dosage: PETHEMA LPA99 PROTOCOL: MAINTENANCE THERAPY
     Route: 065
  5. MERCAPTOPURINE [Suspect]
     Active Substance: MERCAPTOPURINE
     Indication: Acute promyelocytic leukaemia
     Dosage: PETHEMA LPA99 PROTOCOL: MAINTENANCE THERAPY
     Route: 065

REACTIONS (2)
  - Febrile neutropenia [Unknown]
  - Pancytopenia [Unknown]
